FAERS Safety Report 12503910 (Version 1)
Quarter: 2016Q2

REPORT INFORMATION
  Report Type: Spontaneous
  Country: US (occurrence: US)
  Receive Date: 20160628
  Receipt Date: 20160628
  Transmission Date: 20160815
  Serious: No
  Sender: FDA-Public Use
  Company Number: US-APOTEX INC-2015APO00001

PATIENT
  Sex: Female

DRUGS (1)
  1. TIMOLOL OPHTHALMIC SOLUTION 0.5% [Suspect]
     Active Substance: TIMOLOL
     Indication: GLAUCOMA
     Dosage: 1 GTT, 2X/DAY, OU
     Route: 047
     Dates: start: 2015, end: 20151212

REACTIONS (3)
  - Lacrimation increased [Recovered/Resolved]
  - Product contamination [Recovered/Resolved]
  - Conjunctivitis viral [Recovered/Resolved]

NARRATIVE: CASE EVENT DATE: 201512
